FAERS Safety Report 22016266 (Version 4)
Quarter: 2023Q2

REPORT INFORMATION
  Report Type: Report from Study
  Country: US (occurrence: US)
  Receive Date: 20230221
  Receipt Date: 20230609
  Transmission Date: 20230722
  Serious: Yes (Other)
  Sender: FDA-Public Use
  Company Number: US-UCBSA-2023008542

PATIENT
  Age: 37 Year
  Sex: Male

DRUGS (3)
  1. FINTEPLA [Suspect]
     Active Substance: FENFLURAMINE
     Indication: Lennox-Gastaut syndrome
     Dosage: 5.8 MILLILITER, 2X/DAY (BID)
     Route: 048
  2. FINTEPLA [Suspect]
     Active Substance: FENFLURAMINE
     Dosage: 5.5 MILLILITER, 2X/DAY (BID)
     Route: 048
     Dates: start: 202301
  3. FINTEPLA [Suspect]
     Active Substance: FENFLURAMINE
     Dosage: 5.8 MILLILITER, 2X/DAY (BID)
     Route: 048
     Dates: start: 20230123

REACTIONS (8)
  - Seizure [Not Recovered/Not Resolved]
  - Urinary tract infection [Unknown]
  - Bedridden [Unknown]
  - Muscle disorder [Not Recovered/Not Resolved]
  - COVID-19 [Recovered/Resolved]
  - Somnolence [Recovered/Resolved]
  - Snoring [Not Recovered/Not Resolved]
  - Tooth disorder [Not Recovered/Not Resolved]

NARRATIVE: CASE EVENT DATE: 20230205
